FAERS Safety Report 5985254-2 (Version None)
Quarter: 2008Q4

REPORT INFORMATION
  Report Type: 
  Country: None (occurrence: None)
  Receive Date: 20081203
  Receipt Date: 20081125
  Transmission Date: 20090506
  Serious: Yes (Hospitalization)
  Sender: FDA-Public Use
  Company Number: IPS_01360_2008

PATIENT
  Sex: Male

DRUGS (1)
  1. APOKYN [Suspect]
     Indication: DRUG USE FOR UNKNOWN INDICATION
     Dosage: (0.3 ML,   SUBCUTANEOUS)
     Route: 058
     Dates: start: 20081118, end: 20081101

REACTIONS (1)
  - BLOOD PRESSURE INCREASED [None]
